FAERS Safety Report 24173707 (Version 1)
Quarter: 2024Q3

REPORT INFORMATION
  Report Type: Report from Study
  Country: CL (occurrence: CL)
  Receive Date: 20240805
  Receipt Date: 20240805
  Transmission Date: 20241017
  Serious: Yes (Other)
  Sender: SANDOZ
  Company Number: CL-002147023-NVSC2023CL221715

PATIENT
  Age: 38 Year
  Sex: Female

DRUGS (3)
  1. HYRIMOZ [Suspect]
     Active Substance: ADALIMUMAB-ADAZ
     Indication: Colitis ulcerative
     Dosage: 160 MG (IN DAY ZERO)
     Route: 058
     Dates: start: 20231003
  2. HYRIMOZ [Suspect]
     Active Substance: ADALIMUMAB-ADAZ
     Dosage: 40 MG, Q2W
     Route: 058
     Dates: start: 20231009
  3. STELARA [Suspect]
     Active Substance: USTEKINUMAB
     Indication: Product used for unknown indication
     Dosage: 90 MG, EVERY 8 WEEK
     Route: 065

REACTIONS (26)
  - Pneumonia [Unknown]
  - Chronic hepatitis [Unknown]
  - C-reactive protein [Unknown]
  - Headache [Unknown]
  - Chest pain [Unknown]
  - Lung opacity [Unknown]
  - Nasal congestion [Unknown]
  - Cough [Not Recovered/Not Resolved]
  - Dysphonia [Not Recovered/Not Resolved]
  - Spinal osteoarthritis [Unknown]
  - Tachycardia [Unknown]
  - Obstructive airways disorder [Unknown]
  - Pleural effusion [Unknown]
  - Erythema [Unknown]
  - Odynophagia [Unknown]
  - Dyspnoea [Unknown]
  - Crepitations [Unknown]
  - Bronchitis [Unknown]
  - Pulmonary pain [Not Recovered/Not Resolved]
  - Eye pain [Unknown]
  - Abdominal pain [Unknown]
  - Pyrexia [Unknown]
  - Vomiting [Not Recovered/Not Resolved]
  - Hypersensitivity [Unknown]
  - Liver function test abnormal [Unknown]
  - Therapeutic product effect incomplete [Unknown]

NARRATIVE: CASE EVENT DATE: 20231005
